FAERS Safety Report 6054051-4 (Version None)
Quarter: 2009Q1

REPORT INFORMATION
  Report Type: 
  Country: None (occurrence: None)
  Receive Date: 20090123
  Receipt Date: 20090123
  Transmission Date: 20090719
  Serious: Yes (Other)
  Sender: FDA-Public Use
  Company Number: None

PATIENT
  Sex: Female
  Weight: 79.3795 kg

DRUGS (2)
  1. RECLAST [Suspect]
     Indication: OSTEOPOROSIS
     Dosage: ONE IV PER YEAR
     Dates: start: 20081115, end: 20081115
  2. RECLAST [Suspect]
     Indication: STRESS FRACTURE
     Dosage: ONE IV PER YEAR
     Dates: start: 20081115, end: 20081115

REACTIONS (8)
  - ARTHRALGIA [None]
  - BACK PAIN [None]
  - FEAR [None]
  - MIDDLE INSOMNIA [None]
  - MUSCULOSKELETAL PAIN [None]
  - NECK PAIN [None]
  - PAIN [None]
  - PAIN IN EXTREMITY [None]
